FAERS Safety Report 6330264-9 (Version None)
Quarter: 2009Q3

REPORT INFORMATION
  Report Type: 
  Country: None (occurrence: None)
  Receive Date: 20090827
  Receipt Date: 20090515
  Transmission Date: 20100115
  Serious: No
  Sender: FDA-Public Use
  Company Number: US-KINGPHARMUSA00001-K200900595

PATIENT
  Age: 80 Year
  Weight: 58.957 kg

DRUGS (4)
  1. FLECTOR [Suspect]
     Indication: PAIN
     Dosage: 1 PATCH
     Route: 061
     Dates: start: 20090514, end: 20090514
  2. FLECTOR [Suspect]
     Indication: NEUROMA
  3. ESTROGENON [Concomitant]
     Dosage: UNK
  4. THYROID THERAPY [Concomitant]

REACTIONS (1)
  - DRUG INEFFECTIVE [None]
